FAERS Safety Report 9365446 (Version 4)
Quarter: 2014Q1

REPORT INFORMATION
  Report Type: Report from Study
  Country: CA (occurrence: CA)
  Receive Date: 20130625
  Receipt Date: 20140224
  Transmission Date: 20141002
  Serious: Yes (Other)
  Sender: FDA-Public Use
  Company Number: CA-ROCHE-1233758

PATIENT
  Sex: Male
  Weight: 108.8 kg

DRUGS (6)
  1. ACTEMRA [Suspect]
     Indication: RHEUMATOID ARTHRITIS
     Route: 042
     Dates: start: 20121022, end: 20130506
  2. RITUXAN [Suspect]
     Indication: RHEUMATOID ARTHRITIS
     Dosage: DOSE ADMINISTERED ON DAY 1 AND DAY 15
     Route: 042
     Dates: start: 20130618
  3. PREDNISONE [Suspect]
     Indication: PRODUCT USED FOR UNKNOWN INDICATION
     Route: 065
  4. METHOTREXATE [Concomitant]
     Route: 058
  5. COVERSYL PLUS [Concomitant]
  6. OXYCODONE [Concomitant]
     Dosage: FREQUENCY : EVERYDAY.
     Route: 065

REACTIONS (6)
  - Back pain [Not Recovered/Not Resolved]
  - Neoplasm [Unknown]
  - Drug ineffective [Unknown]
  - Blood cholesterol increased [Not Recovered/Not Resolved]
  - Osteomyelitis [Not Recovered/Not Resolved]
  - Weight increased [Not Recovered/Not Resolved]
